FAERS Safety Report 15294883 (Version 2)
Quarter: 2018Q3

REPORT INFORMATION
  Report Type: Report from Study
  Country: US (occurrence: US)
  Receive Date: 20180820
  Receipt Date: 20180913
  Transmission Date: 20181010
  Serious: Yes (Other)
  Sender: FDA-Public Use
  Company Number: US-EMD SERONO-E2B_90055344

PATIENT
  Age: 70 Year
  Sex: Female

DRUGS (2)
  1. REBIF [Suspect]
     Active Substance: INTERFERON BETA-1A
     Route: 058
     Dates: start: 20180817
  2. REBIF [Suspect]
     Active Substance: INTERFERON BETA-1A
     Indication: MULTIPLE SCLEROSIS
     Route: 058
     Dates: start: 20130812, end: 201802

REACTIONS (7)
  - Renal disorder [Not Recovered/Not Resolved]
  - Treatment noncompliance [Unknown]
  - Multiple sclerosis [Not Recovered/Not Resolved]
  - Urinary tract infection [Not Recovered/Not Resolved]
  - Needle fatigue [Unknown]
  - Abdominal adhesions [Unknown]
  - Injection site reaction [Unknown]

NARRATIVE: CASE EVENT DATE: 201803
